FAERS Safety Report 14816186 (Version 1)
Quarter: 2018Q2

REPORT INFORMATION
  Report Type: Spontaneous
  Country: PL (occurrence: PL)
  Receive Date: 20180426
  Receipt Date: 20180426
  Transmission Date: 20180711
  Serious: Yes (Hospitalization, Other)
  Sender: FDA-Public Use
  Company Number: PHHY2018PL068083

PATIENT
  Age: 71 Year
  Sex: Male

DRUGS (4)
  1. PAZOPANIB [Suspect]
     Active Substance: PAZOPANIB
     Indication: RENAL CELL CARCINOMA
     Dosage: UNK
     Route: 065
     Dates: start: 201507
  2. PREDNISOLONE. [Concomitant]
     Active Substance: PREDNISOLONE
     Indication: PRODUCT USED FOR UNKNOWN INDICATION
     Route: 065
  3. PAZOPANIB [Suspect]
     Active Substance: PAZOPANIB
     Dosage: 400 MG, QD
     Route: 065
  4. PAZOPANIB [Suspect]
     Active Substance: PAZOPANIB
     Dosage: 600 MG, QD
     Route: 065

REACTIONS (17)
  - Ischaemic stroke [Unknown]
  - Bronchostenosis [Unknown]
  - Hemiparesis [Unknown]
  - Malignant neoplasm progression [Unknown]
  - Concomitant disease progression [Unknown]
  - Blood pressure fluctuation [Unknown]
  - Speech disorder [Unknown]
  - Anxiety disorder [Unknown]
  - Asthenia [Unknown]
  - Rash [Unknown]
  - Acute coronary syndrome [Unknown]
  - Lymphadenopathy [Unknown]
  - Oesophageal disorder [Unknown]
  - Decreased appetite [Not Recovered/Not Resolved]
  - Diarrhoea [Unknown]
  - Weight decreased [Unknown]
  - Renal cell carcinoma [Unknown]
